FAERS Safety Report 6170590-X (Version None)
Quarter: 2009Q2

REPORT INFORMATION
  Report Type: 
  Country: None (occurrence: None)
  Receive Date: 20090428
  Receipt Date: 20090421
  Transmission Date: 20091009
  Serious: Yes (Hospitalization, Other)
  Sender: FDA-Public Use
  Company Number: US-ELI_LILLY_AND_COMPANY-US200904004611

PATIENT
  Age: 88 Year
  Sex: Female

DRUGS (4)
  1. FORTEO [Suspect]
     Dosage: UNK, UNK
     Dates: start: 20080501, end: 20090324
  2. FORTEO [Suspect]
     Dosage: UNK, UNK
     Dates: start: 20090301
  3. COUMADIN [Concomitant]
  4. COREG [Concomitant]

REACTIONS (2)
  - FALL [None]
  - PELVIC FRACTURE [None]
